FAERS Safety Report 25306769 (Version 2)
Quarter: 2025Q2

REPORT INFORMATION
  Report Type: Report from Study
  Country: CN (occurrence: CN)
  Receive Date: 20250513
  Receipt Date: 20250617
  Transmission Date: 20250717
  Serious: No
  Sender: STEMLINE THERAPEUTICS
  Company Number: CN-STEMLINE THERAPEUTICS B.V.-2025-STML-CN001221

PATIENT

DRUGS (7)
  1. ELACESTRANT [Suspect]
     Active Substance: ELACESTRANT
     Indication: Breast cancer metastatic
     Dosage: 345 MG, DAILY
     Route: 048
     Dates: start: 20250226, end: 20250324
  2. ELACESTRANT [Suspect]
     Active Substance: ELACESTRANT
     Route: 048
     Dates: start: 20250326, end: 20250421
  3. ELACESTRANT [Suspect]
     Active Substance: ELACESTRANT
     Route: 048
     Dates: start: 20250425
  4. CAPIVASERTIB [Suspect]
     Active Substance: CAPIVASERTIB
     Indication: Breast cancer metastatic
     Route: 065
     Dates: start: 20250226
  5. Essentiale [Concomitant]
     Indication: Prophylaxis
  6. DIETARY SUPPLEMENT\HERBALS\MILK THISTLE [Concomitant]
     Active Substance: MILK THISTLE
     Indication: Prophylaxis
  7. GRANULOCYTE COLONY-STIMULATING FACTOR NOS [Concomitant]
     Active Substance: GRANULOCYTE COLONY-STIMULATING FACTOR NOS
     Indication: Prophylaxis
     Route: 058
     Dates: start: 20250226, end: 20250228

REACTIONS (1)
  - Diarrhoea [Recovered/Resolved]

NARRATIVE: CASE EVENT DATE: 20250303
